FAERS Safety Report 14134639 (Version 4)
Quarter: 2018Q1

REPORT INFORMATION
  Report Type: Spontaneous
  Country: JP (occurrence: JP)
  Receive Date: 20171027
  Receipt Date: 20180124
  Transmission Date: 20180508
  Serious: Yes (Other)
  Sender: FDA-Public Use
  Company Number: JP-JNJFOC-20171027017

PATIENT
  Age: 11 Month
  Sex: Male

DRUGS (12)
  1. SACCHARATED IRON OXIDE [Concomitant]
     Active Substance: IRON SUCROSE
     Dosage: 04:25 HOURS-CONTINUED
     Route: 042
     Dates: start: 20170424
  2. SOLU-CORTEF [Concomitant]
     Active Substance: HYDROCORTISONE SODIUM SUCCINATE
     Indication: PROPHYLAXIS
     Route: 042
     Dates: start: 20170427, end: 20170427
  3. REMICADE [Suspect]
     Active Substance: INFLIXIMAB
     Indication: CROHN^S DISEASE
     Dosage: FIRST DOSE
     Route: 042
     Dates: start: 20170315
  4. REMICADE [Suspect]
     Active Substance: INFLIXIMAB
     Indication: CROHN^S DISEASE
     Route: 042
     Dates: start: 20170329, end: 20170329
  5. HYDROXYZINE [Concomitant]
     Active Substance: HYDROXYZINE HYDROCHLORIDE
     Indication: PROPHYLAXIS
     Route: 041
     Dates: start: 20170427, end: 20170427
  6. SOLU-CORTEF [Concomitant]
     Active Substance: HYDROCORTISONE SODIUM SUCCINATE
     Indication: PREMEDICATION
     Route: 042
     Dates: start: 20170427, end: 20170427
  7. REMICADE [Suspect]
     Active Substance: INFLIXIMAB
     Indication: CROHN^S DISEASE
     Dosage: APPROXIMATELY 20 MG/DAY
     Route: 042
     Dates: start: 20170412, end: 20170412
  8. PENTASA [Concomitant]
     Active Substance: MESALAMINE
     Dosage: 18:46 HOURS-CONTINUED
     Route: 048
     Dates: start: 20170310
  9. INTRALIPOS [Concomitant]
     Active Substance: SOYBEAN OIL
     Route: 041
     Dates: start: 20170424
  10. REMICADE [Suspect]
     Active Substance: INFLIXIMAB
     Indication: CROHN^S DISEASE
     Route: 042
     Dates: start: 20170427, end: 20170427
  11. PENTASA [Concomitant]
     Active Substance: MESALAMINE
     Dosage: 08:01 HOURS-CONTINUED
     Route: 048
     Dates: start: 20170311
  12. HYDROXYZINE [Concomitant]
     Active Substance: HYDROXYZINE HYDROCHLORIDE
     Indication: PREMEDICATION
     Route: 041
     Dates: start: 20170427, end: 20170427

REACTIONS (4)
  - Anaphylactic shock [Recovered/Resolved]
  - Infusion related reaction [Recovered/Resolved]
  - Off label use [Unknown]
  - Product use issue [Unknown]

NARRATIVE: CASE EVENT DATE: 20170315
